FAERS Safety Report 6868116-8 (Version None)
Quarter: 2010Q3

REPORT INFORMATION
  Report Type: 
  Country: None (occurrence: None)
  Receive Date: 20100722
  Receipt Date: 20080516
  Transmission Date: 20110219
  Serious: No
  Sender: FDA-Public Use
  Company Number: US-PFIZER INC-2008042473

PATIENT
  Sex: Female
  Weight: 73.2 kg

DRUGS (8)
  1. CHANTIX [Suspect]
     Indication: SMOKING CESSATION THERAPY
     Dates: start: 20080501, end: 20080515
  2. PREDNISONE [Concomitant]
  3. AMOXICILLIN [Concomitant]
  4. CIPROFLOXACIN HCL [Concomitant]
  5. DEPAKOTE [Concomitant]
  6. LITHIUM [Concomitant]
  7. SEROQUEL [Concomitant]
  8. VITAMINS [Concomitant]

REACTIONS (4)
  - ABDOMINAL PAIN UPPER [None]
  - HEADACHE [None]
  - MALAISE [None]
  - VOMITING [None]
